FAERS Safety Report 9964316 (Version 1)
Quarter: 2014Q1

REPORT INFORMATION
  Report Type: Spontaneous
  Country: US (occurrence: US)
  Receive Date: 20140305
  Receipt Date: 20140305
  Transmission Date: 20141002
  Serious: Yes (Death, Life-Threatening, Disabling)
  Sender: FDA-Public Use
  Company Number: US-GLAXOSMITHKLINE-A1063097A

PATIENT
  Age: 74 Year
  Sex: Male

DRUGS (2)
  1. VOTRIENT [Suspect]
     Indication: PROSTATE CANCER
     Dosage: 600MG PER DAY
     Route: 048
     Dates: start: 20131122, end: 2014
  2. LIPITOR [Concomitant]

REACTIONS (1)
  - Death [Fatal]
